FAERS Safety Report 6320377 (Version 6)
Quarter: 2020Q3

REPORT INFORMATION
  Report Type: Report from Study
  Country: US (occurrence: US)
  Receive Date: 20070525
  Receipt Date: 20070927
  Transmission Date: 20201104
  Serious: Yes (Hospitalization)
  Sender: FDA-Public Use
  Company Number: US-JNJFOC-20070105588

PATIENT
  Age: 0 Year
  Sex: Female
  Weight: 5.09 kg

DRUGS (14)
  1. CEREBYX [Concomitant]
     Active Substance: FOSPHENYTOIN SODIUM
     Route: 042
  2. TEGRETAL [Concomitant]
     Active Substance: CARBAMAZEPINE
  3. CEREBYX [Concomitant]
     Active Substance: FOSPHENYTOIN SODIUM
     Indication: SEIZURE
     Route: 042
  4. BICITRA [Concomitant]
     Active Substance: CITRIC ACID, 1-STEARYL ESTER\SODIUM CITRATE
     Indication: METABOLIC ACIDOSIS
  5. TOPIRAMATE. [Suspect]
     Active Substance: TOPIRAMATE
     Indication: PARTIAL SEIZURES
     Route: 048
  6. TOPIRAMATE. [Suspect]
     Active Substance: TOPIRAMATE
     Route: 048
  7. TOPIRAMATE. [Suspect]
     Active Substance: TOPIRAMATE
     Dosage: VIA G?TUBE
     Route: 048
  8. CEREBYX [Concomitant]
     Active Substance: FOSPHENYTOIN SODIUM
     Route: 042
  9. TOPIRAMATE. [Suspect]
     Active Substance: TOPIRAMATE
     Dosage: VIA G?TUBE
     Route: 048
  10. TOPIRAMATE. [Suspect]
     Active Substance: TOPIRAMATE
     Dosage: VIA G?TUBE
     Route: 048
  11. TOPIRAMATE. [Suspect]
     Active Substance: TOPIRAMATE
     Dosage: VIA G?TUBE
     Route: 048
  12. TEGRETAL [Concomitant]
     Active Substance: CARBAMAZEPINE
  13. PHENOBARBITAL. [Concomitant]
     Active Substance: PHENOBARBITAL
  14. TEGRETAL [Concomitant]
     Active Substance: CARBAMAZEPINE
     Indication: SEIZURE

REACTIONS (4)
  - Aspiration [Recovered/Resolved]
  - Seizure [Recovered/Resolved]
  - Urinary tract infection [Recovered/Resolved]
  - Failure to thrive [Recovered/Resolved]

NARRATIVE: CASE EVENT DATE: 20070116
